FAERS Safety Report 5800924-4 (Version None)
Quarter: 2008Q3

REPORT INFORMATION
  Report Type: 
  Country: None (occurrence: None)
  Receive Date: 20080702
  Receipt Date: 20080616
  Transmission Date: 20090109
  Serious: Yes (Hospitalization)
  Sender: FDA-Public Use
  Company Number: 2008AL006926

PATIENT
  Age: 84 Year
  Sex: Male
  Weight: 68.0396 kg

DRUGS (7)
  1. DIGOXIN [Suspect]
     Indication: CARDIAC DISORDER
     Dosage: .25MG, QD, PO
     Route: 048
     Dates: end: 20080201
  2. COREG [Concomitant]
  3. WARFARIN SODIUM [Concomitant]
  4. METOLAZONE [Concomitant]
  5. FUROSEMIDE [Concomitant]
  6. POTASSIUM CHLORIDE [Concomitant]
  7. MULTI-VITAMINS [Concomitant]

REACTIONS (6)
  - CONFUSION POSTOPERATIVE [None]
  - DIZZINESS [None]
  - MALAISE [None]
  - PRURITUS [None]
  - RASH [None]
  - VOMITING [None]
